FAERS Safety Report 17319824 (Version 2)
Quarter: 2020Q1

REPORT INFORMATION
  Report Type: Report from Study
  Country: GB (occurrence: GB)
  Receive Date: 20200125
  Receipt Date: 20200304
  Transmission Date: 20200409
  Serious: Yes (Other)
  Sender: FDA-Public Use
  Company Number: NVSC2020GB015582

PATIENT
  Sex: Male

DRUGS (1)
  1. COSENTYX [Suspect]
     Active Substance: SECUKINUMAB
     Indication: ANKYLOSING SPONDYLITIS
     Dosage: 150 MG, QMO
     Route: 058
     Dates: start: 20190911

REACTIONS (5)
  - Abdominal pain [Recovering/Resolving]
  - Lower respiratory tract infection [Recovering/Resolving]
  - Malaise [Recovering/Resolving]
  - Psoriasis [Unknown]
  - Rhinorrhoea [Recovering/Resolving]
